FAERS Safety Report 23857156 (Version 5)
Quarter: 2025Q1

REPORT INFORMATION
  Report Type: Spontaneous
  Country: US (occurrence: US)
  Receive Date: 20240515
  Receipt Date: 20250314
  Transmission Date: 20250408
  Serious: Yes (Other)
  Sender: CSL BEHRING
  Company Number: US-BEH-2024171865

PATIENT
  Age: 65 Year
  Sex: Male

DRUGS (8)
  1. HAEGARDA [Suspect]
     Active Substance: HUMAN C1-ESTERASE INHIBITOR
     Indication: Hereditary angioedema
     Dosage: 4000 IU, BIW, EVERY 3-4 DAYS
     Route: 058
     Dates: start: 202402
  2. HAEGARDA [Suspect]
     Active Substance: HUMAN C1-ESTERASE INHIBITOR
     Indication: Prophylaxis
  3. HAEGARDA [Suspect]
     Active Substance: HUMAN C1-ESTERASE INHIBITOR
     Indication: Hereditary angioedema
     Dosage: 3000 IU, EVERY 3-4 DAYS
     Route: 058
     Dates: start: 202402
  4. HAEGARDA [Suspect]
     Active Substance: HUMAN C1-ESTERASE INHIBITOR
     Indication: Prophylaxis
  5. HAEGARDA [Suspect]
     Active Substance: HUMAN C1-ESTERASE INHIBITOR
     Indication: Rash
     Route: 065
  6. DUPIXENT [Concomitant]
     Active Substance: DUPILUMAB
     Indication: Asthma
  7. HYDROXYZINE [Concomitant]
     Active Substance: HYDROXYZINE HYDROCHLORIDE
  8. LORATADINE [Concomitant]
     Active Substance: LORATADINE

REACTIONS (13)
  - Hereditary angioedema [Unknown]
  - Swelling [Unknown]
  - Erythema [Unknown]
  - Erythema [Recovered/Resolved]
  - Rash [Recovered/Resolved with Sequelae]
  - Dyspnoea [Unknown]
  - Skin exfoliation [Unknown]
  - Scab [Unknown]
  - Off label use [Unknown]
  - Chest pain [Unknown]
  - Fall [Unknown]
  - Weight increased [Recovered/Resolved]
  - Hereditary angioedema [Recovered/Resolved]

NARRATIVE: CASE EVENT DATE: 20240401
